FAERS Safety Report 23254452 (Version 4)
Quarter: 2023Q4

REPORT INFORMATION
  Report Type: Spontaneous
  Country: IN (occurrence: IN)
  Receive Date: 20231202
  Receipt Date: 20231218
  Transmission Date: 20240109
  Serious: Yes (Other)
  Sender: FDA-Public Use
  Company Number: IN-TORRENT-00003404

PATIENT
  Age: 40 Year
  Sex: Female

DRUGS (1)
  1. TOPIRAMATE [Suspect]
     Active Substance: TOPIRAMATE
     Indication: Migraine prophylaxis
     Route: 065

REACTIONS (3)
  - Angle closure glaucoma [Recovered/Resolved]
  - Myopia [Recovered/Resolved]
  - Choroidal effusion [Recovered/Resolved]
